FAERS Safety Report 21732813 (Version 1)
Quarter: 2022Q4

REPORT INFORMATION
  Report Type: Spontaneous
  Country: CN (occurrence: CN)
  Receive Date: 20221215
  Receipt Date: 20221215
  Transmission Date: 20230112
  Serious: Yes (Other)
  Sender: FDA-Public Use
  Company Number: CN-JNJFOC-20221221533

PATIENT
  Age: 36 Day
  Sex: Male
  Weight: 0.92 kg

DRUGS (1)
  1. CHILDRENS MOTRIN [Suspect]
     Active Substance: IBUPROFEN
     Indication: Neonatal respiratory distress syndrome
     Dosage: 0.4 ML, 0.23 ML AND 0.2 ML, QD
     Route: 048
     Dates: start: 20221111, end: 20221113

REACTIONS (1)
  - Oliguria [Recovered/Resolved]

NARRATIVE: CASE EVENT DATE: 20221112
